FAERS Safety Report 14862121 (Version 3)
Quarter: 2019Q2

REPORT INFORMATION
  Report Type: Spontaneous
  Country: US (occurrence: US)
  Receive Date: 20180508
  Receipt Date: 20190627
  Transmission Date: 20190711
  Serious: Yes (Other)
  Sender: FDA-Public Use
  Company Number: US-CELLTRION INC.-2018US017522

PATIENT

DRUGS (4)
  1. INFLECTRA [Suspect]
     Active Substance: INFLIXIMAB-DYYB
     Dosage: 1031.8 MG INFUSION EVERY 4 WEEKS
     Route: 042
     Dates: start: 20180111, end: 20180111
  2. INFLECTRA [Suspect]
     Active Substance: INFLIXIMAB-DYYB
     Indication: RHEUMATOID ARTHRITIS
     Dosage: 1031.8 MG INFUSION EVERY 4 WEEKS
     Route: 042
     Dates: start: 201712, end: 201712
  3. PROTONIX [Concomitant]
     Active Substance: PANTOPRAZOLE SODIUM
     Indication: GASTROOESOPHAGEAL REFLUX DISEASE
     Dosage: 40 MG, TABLET, TWICE, ORALLY
     Route: 048
  4. INFLECTRA [Suspect]
     Active Substance: INFLIXIMAB-DYYB
     Dosage: 986.4 MG (100 MG VIAL) ONCE A DAY EVERY FOUR WEEKS
     Route: 042
     Dates: start: 20171207, end: 20190513

REACTIONS (2)
  - Product use issue [Unknown]
  - Breast cancer [Unknown]

NARRATIVE: CASE EVENT DATE: 20190604
